FAERS Safety Report 6560342-0 (Version None)
Quarter: 2010Q1

REPORT INFORMATION
  Report Type: 
  Country: None (occurrence: None)
  Receive Date: 20100129
  Receipt Date: 20090923
  Transmission Date: 20100710
  Serious: No
  Sender: FDA-Public Use
  Company Number: US-ABBOTT-09P-163-0599084-00

PATIENT
  Sex: Male
  Weight: 91.708 kg

DRUGS (3)
  1. HUMIRA [Suspect]
     Indication: PSORIASIS
     Route: 058
     Dates: start: 20070101
  2. LESCOL [Suspect]
     Indication: BLOOD CHOLESTEROL INCREASED
     Dates: start: 20090501
  3. LESCOL [Suspect]
     Route: 048
     Dates: end: 20090501

REACTIONS (2)
  - MUSCLE SPASMS [None]
  - PROSTATOMEGALY [None]
